FAERS Safety Report 8304367-3 (Version None)
Quarter: 2012Q2

REPORT INFORMATION
  Report Type: 
  Country: None (occurrence: None)
  Receive Date: 20120423
  Receipt Date: 20120409
  Transmission Date: 20120825
  Serious: Yes (Other)
  Sender: FDA-Public Use
  Company Number: US-ELI_LILLY_AND_COMPANY-US201204003576

PATIENT
  Age: 64 Year
  Sex: Female

DRUGS (4)
  1. FENTANYL [Concomitant]
     Route: 062
  2. DILAUDID                                /USA/ [Concomitant]
     Indication: PAIN
  3. CYMBALTA [Suspect]
     Indication: BACK PAIN
     Dosage: 60 MG, QD
     Dates: start: 20070101
  4. GABAPENTIN [Concomitant]

REACTIONS (3)
  - SURGERY [None]
  - WEIGHT INCREASED [None]
  - DRUG INEFFECTIVE [None]
